FAERS Safety Report 26197607 (Version 1)
Quarter: 2025Q4

REPORT INFORMATION
  Report Type: Spontaneous
  Country: US (occurrence: US)
  Receive Date: 20251224
  Receipt Date: 20251224
  Transmission Date: 20260117
  Serious: No
  Sender: SANOFI AVENTIS
  Company Number: US-SA-2025SA383542

PATIENT
  Sex: Female
  Weight: 100.41 kg

DRUGS (23)
  1. DUPIXENT [Suspect]
     Active Substance: DUPILUMAB
     Indication: Dermatitis atopic
     Dosage: 300 MG, QOW
     Route: 058
  2. CHROMIUM PICOLINATE [Concomitant]
     Active Substance: CHROMIUM PICOLINATE
  3. FLAXSEED [Concomitant]
     Active Substance: FLAX SEED
  4. HERBALS [Concomitant]
     Active Substance: HERBALS
  5. CALCIUM [Concomitant]
     Active Substance: CALCIUM
  6. POTASSIUM [Concomitant]
     Active Substance: POTASSIUM
  7. CURCUMIN [Concomitant]
     Active Substance: CURCUMIN
  8. SELENIUM [Concomitant]
     Active Substance: SELENIUM
  9. OREGANO LEAF OIL [Concomitant]
     Active Substance: OREGANO LEAF OIL
  10. PREVNAR [Concomitant]
     Active Substance: PNEUMOCOCCAL 7-VALENT CONJUGATE VACCINE (DIPHTHERIA CRM197 PROTEIN)
  11. ZINC [Concomitant]
     Active Substance: ZINC
  12. VITAMIN D3 [Concomitant]
     Active Substance: CHOLECALCIFEROL
  13. FISH OIL [Concomitant]
     Active Substance: FISH OIL
  14. Glucosamine + chondroitin + ms [Concomitant]
  15. COENZYME Q10 [Concomitant]
     Active Substance: DIETARY SUPPLEMENT\UBIDECARENONE
  16. Dim plus [Concomitant]
  17. VITAMINS [Concomitant]
     Active Substance: VITAMINS
  18. ATORVASTATIN CALCIUM [Concomitant]
     Active Substance: ATORVASTATIN CALCIUM
  19. AMLODIPINE BESYLATE [Concomitant]
     Active Substance: AMLODIPINE BESYLATE
  20. MONTELUKAST SODIUM [Concomitant]
     Active Substance: MONTELUKAST SODIUM
  21. TRELEGY ELLIPTA [Concomitant]
     Active Substance: FLUTICASONE FUROATE\UMECLIDINIUM BROMIDE\VILANTEROL TRIFENATATE
  22. ANZUPGO [Concomitant]
     Active Substance: DELGOCITINIB
  23. RINVOQ [Concomitant]
     Active Substance: UPADACITINIB

REACTIONS (1)
  - Drug ineffective [Unknown]
